FAERS Safety Report 8580472-1 (Version None)
Quarter: 2012Q3

REPORT INFORMATION
  Report Type: 
  Country: None (occurrence: None)
  Receive Date: 20120808
  Receipt Date: 20070226
  Transmission Date: 20120928
  Serious: Yes (Other)
  Sender: FDA-Public Use
  Company Number: CO-PFIZER INC-2012184806

PATIENT
  Age: 58 Year
  Sex: Female

DRUGS (5)
  1. QUINAPRIL AND HYDROCHLOROTHIAZIDE [Suspect]
     Indication: HYPERTENSION
     Dosage: [QUINAPRIL HCL 20 MG/ HYDROCHLOROTHIAZIDE 12.5 MG], 1X/DAY
  2. GLIBENCLAMIDE [Concomitant]
     Dosage: 5 MG, 1X/DAY
  3. GLIBENCLAMIDE [Concomitant]
     Dosage: 5 MG, 3X/DAY
  4. LIPITOR [Suspect]
     Indication: DYSLIPIDAEMIA
     Dosage: 10 MG, 1X/DAY
  5. AMLODIPINE [Concomitant]
     Dosage: 5 MG, 1X/DAY

REACTIONS (4)
  - CHEST PAIN [None]
  - HYPERTENSIVE EMERGENCY [None]
  - COUGH [None]
  - DYSPNOEA [None]
